FAERS Safety Report 5613416-2 (Version None)
Quarter: 2008Q1

REPORT INFORMATION
  Report Type: 
  Country: None (occurrence: None)
  Receive Date: 20080129
  Receipt Date: 20080116
  Transmission Date: 20080703
  Serious: Yes (Hospitalization, Other)
  Sender: FDA-Public Use
  Company Number: 44452

PATIENT
  Age: 23 Year
  Sex: Male

DRUGS (2)
  1. CISPLATIN [Suspect]
     Indication: BRAIN CANCER METASTATIC
     Dosage: 20MG/M2/DAY
  2. ETOPOSDIE INJ. 500MG/25ML [Suspect]
     Indication: BRAIN CANCER METASTATIC
     Dosage: 50MG/M2/DAY

REACTIONS (3)
  - HAEMODIALYSIS [None]
  - NO THERAPEUTIC RESPONSE [None]
  - TUMOUR LYSIS SYNDROME [None]
